FAERS Safety Report 10684281 (Version 2)
Quarter: 2015Q2

REPORT INFORMATION
  Report Type: Spontaneous
  Country: FR (occurrence: FR)
  Receive Date: 20141231
  Receipt Date: 20150613
  Transmission Date: 20150821
  Serious: Yes (Hospitalization)
  Sender: FDA-Public Use
  Company Number: FR-BIOGENIDEC-2014BI135917

PATIENT
  Age: 36 Year
  Sex: Female

DRUGS (2)
  1. KARDEGIC [Concomitant]
     Active Substance: ASPIRIN LYSINE
     Indication: PROPHYLAXIS
  2. TECFIDERA [Suspect]
     Active Substance: DIMETHYL FUMARATE
     Indication: RELAPSING-REMITTING MULTIPLE SCLEROSIS
     Route: 048

REACTIONS (7)
  - Gastritis haemorrhagic [Unknown]
  - Haematemesis [Unknown]
  - Food intolerance [Unknown]
  - Pruritus [Recovered/Resolved]
  - Vomiting [Unknown]
  - Mallory-Weiss syndrome [Unknown]
  - Erythema [Recovered/Resolved]

NARRATIVE: CASE EVENT DATE: 20141101
